FAERS Safety Report 19055374 (Version 1)
Quarter: 2021Q1

REPORT INFORMATION
  Report Type: Spontaneous
  Country: DE (occurrence: DE)
  Receive Date: 20210325
  Receipt Date: 20210325
  Transmission Date: 20210420
  Serious: Yes (Hospitalization)
  Sender: FDA-Public Use
  Company Number: DE-TEVA-2021-DE-1893363

PATIENT
  Age: 75 Year
  Sex: Male

DRUGS (11)
  1. KALINOR [Concomitant]
     Dosage: 2 DOSAGE FORMS DAILY; NK MG, 1?1?0?0
  2. METOPROLOL. [Suspect]
     Active Substance: METOPROLOL
     Dosage: .5 DOSAGE FORMS DAILY; 95 MG, 0.5?0?0?0
  3. BRIMICA GENUAIR GENUAIR 340MIKROGRAMM/12MIKROGRAMM [Concomitant]
     Dosage: 2 DOSAGE FORMS DAILY; 340|12 UG, 1?0?1?0
  4. PANTOPRAZOL [Concomitant]
     Active Substance: PANTOPRAZOLE SODIUM
     Dosage: 40 MILLIGRAM DAILY;  1?0?0?0
  5. DIGITOXIN [Concomitant]
     Active Substance: DIGITOXIN
     Dosage: .1 MILLIGRAM DAILY; 1?0?0?0
  6. ENTRESTO [Concomitant]
     Active Substance: SACUBITRIL\VALSARTAN
     Dosage: 1 DOSAGE FORMS DAILY; 24|26 MG, 0.5?0?0.5?0
  7. MIFLONIDE 200 MIKROGRAMM [Concomitant]
     Dosage: 400 MICROGRAM DAILY; 200 UG, 1?0?1?0
  8. ALLOPURINOL. [Concomitant]
     Active Substance: ALLOPURINOL
     Dosage: 300 MILLIGRAM DAILY; 1?0?0?0
  9. FENOTEROL W/IPRATROPIUMBROMID [Concomitant]
     Dosage: NK MG, IF NECESSARY
  10. PHENPROCOUMON [Concomitant]
     Active Substance: PHENPROCOUMON
     Dosage: 3 MG, ACCORDING TO INR
  11. TORASEMID [Concomitant]
     Active Substance: TORSEMIDE
     Dosage: 20 MILLIGRAM DAILY; 1?0?0?0

REACTIONS (2)
  - Pain [Unknown]
  - Wound [Unknown]
